FAERS Safety Report 5292152-9 (Version None)
Quarter: 2007Q2

REPORT INFORMATION
  Report Type: 
  Country: None (occurrence: None)
  Receive Date: 20070410
  Receipt Date: 20070330
  Transmission Date: 20071010
  Serious: Yes (Disabling)
  Sender: FDA-Public Use
  Company Number: JP-JPN-A200701300

PATIENT
  Age: 9 Year
  Sex: Male

DRUGS (3)
  1. RELENZA [Suspect]
     Indication: INFLUENZA
     Dosage: 10MG TWICE PER DAY
     Route: 055
     Dates: start: 20070317, end: 20070317
  2. ACETAMINOPHEN [Suspect]
     Route: 048
     Dates: start: 20070317
  3. CALONAL [Concomitant]
     Route: 048
     Dates: start: 20070317, end: 20070317

REACTIONS (4)
  - ABNORMAL BEHAVIOUR [None]
  - CONVULSION [None]
  - HEADACHE [None]
  - PYREXIA [None]
